FAERS Safety Report 7350189-X (Version None)
Quarter: 2011Q1

REPORT INFORMATION
  Report Type: 
  Country: None (occurrence: None)
  Receive Date: 20110314
  Receipt Date: 20110308
  Transmission Date: 20110831
  Serious: Yes (Other)
  Sender: FDA-Public Use
  Company Number: B0705225A

PATIENT
  Age: 64 Year
  Sex: Male

DRUGS (1)
  1. AVANDIA [Suspect]
     Dosage: 8MG PER DAY
     Route: 048
     Dates: start: 20050629, end: 20110106

REACTIONS (4)
  - DYSPNOEA [None]
  - CATHETERISATION CARDIAC [None]
  - PAIN [None]
  - CARDIAC FAILURE CONGESTIVE [None]
